FAERS Safety Report 9233231 (Version 1)
Quarter: 2013Q2

REPORT INFORMATION
  Report Type: Spontaneous
  Country: US (occurrence: None)
  Receive Date: 20130415
  Receipt Date: 20130415
  Transmission Date: 20140414
  Serious: Yes (Disabling)
  Sender: FDA-Public Use
  Company Number: None

PATIENT
  Age: 46 Year
  Sex: Male
  Weight: 90.72 kg

DRUGS (1)
  1. RISPERDAL CONSTA [Suspect]
     Dosage: 25 TO 37 MG 2 WEEKS IM
     Route: 030
     Dates: start: 20040113, end: 20130412

REACTIONS (3)
  - Fear [None]
  - Visual acuity reduced [None]
  - Visual impairment [None]
